FAERS Safety Report 22324977 (Version 2)
Quarter: 2023Q4

REPORT INFORMATION
  Report Type: Spontaneous
  Country: FR (occurrence: FR)
  Receive Date: 20230516
  Receipt Date: 20231010
  Transmission Date: 20240110
  Serious: Yes (Hospitalization, Other)
  Sender: FDA-Public Use
  Company Number: FR-002147023-NVSC2023FR103964

PATIENT

DRUGS (34)
  1. RUXOLITINIB [Suspect]
     Active Substance: RUXOLITINIB
     Indication: Polycythaemia vera
     Dosage: 1 DOSAGE FORM, BID ( 1 - 0 - 1)
     Route: 065
     Dates: start: 201610, end: 20220526
  2. ATENOLOL [Concomitant]
     Active Substance: ATENOLOL
     Indication: Product used for unknown indication
     Dosage: 50 MG, BID (1-0-1)
     Route: 065
     Dates: start: 20220809
  3. ATENOLOL [Concomitant]
     Active Substance: ATENOLOL
     Dosage: 50 MG, BID (1-0-1)
     Route: 065
     Dates: start: 20220901
  4. CANDESARTAN CILEXETIL\HYDROCHLOROTHIAZIDE [Concomitant]
     Active Substance: CANDESARTAN CILEXETIL\HYDROCHLOROTHIAZIDE
     Indication: Product used for unknown indication
     Dosage: 16/12.5 MG, QD (1-0-0)
     Route: 065
  5. ATORVASTATIN [Concomitant]
     Active Substance: ATORVASTATIN
     Indication: Product used for unknown indication
     Dosage: 10 MG, QD (0 - 0 - 1)
     Route: 065
     Dates: start: 20220901
  6. METFORMIN [Concomitant]
     Active Substance: METFORMIN HYDROCHLORIDE
     Indication: Type 2 diabetes mellitus
     Dosage: 500 MG, QD (0 - 0 - 1)
     Route: 065
  7. METFORMIN [Concomitant]
     Active Substance: METFORMIN HYDROCHLORIDE
     Dosage: 500 MG, TID
     Route: 065
     Dates: start: 20220809
  8. BIMATOPROST\TIMOLOL [Concomitant]
     Active Substance: BIMATOPROST\TIMOLOL
     Indication: Product used for unknown indication
     Dosage: 1 DRP, QD (1 DROP IN THE EVENING)
     Route: 065
     Dates: start: 20220809
  9. BIMATOPROST\TIMOLOL [Concomitant]
     Active Substance: BIMATOPROST\TIMOLOL
     Dosage: 1 DRP, QD (1 DROP IN THE EVENING)
     Route: 065
     Dates: start: 20220901
  10. KETOTIFEN FUMARATE [Concomitant]
     Active Substance: KETOTIFEN FUMARATE
     Indication: Product used for unknown indication
     Dosage: 1 DRP, BID (1 DROP MORNING AND EVENING, STRENGTH: 0.25))
     Route: 065
     Dates: start: 20220809
  11. KETOTIFEN FUMARATE [Concomitant]
     Active Substance: KETOTIFEN FUMARATE
     Dosage: 1 DRP, BID (1 DROP MORNING AND EVENING, STRENGTH: 0.25))
     Route: 065
     Dates: start: 20220901
  12. TAMSULOSIN [Concomitant]
     Active Substance: TAMSULOSIN
     Indication: Product used for unknown indication
     Dosage: 0.4 MG, QD (0-0-1)
     Route: 065
  13. ENOXAPARIN SODIUM [Concomitant]
     Active Substance: ENOXAPARIN SODIUM
     Indication: Product used for unknown indication
     Dosage: 4000 IU, QD (1 INJ. / D, IN THE EVENING)
     Route: 058
     Dates: start: 20220809
  14. UMULINE [Concomitant]
     Active Substance: INSULIN HUMAN
     Indication: Product used for unknown indication
     Dosage: UNK, PRN (IF NECESSARY)
     Route: 065
     Dates: start: 20220809
  15. FRESUBIN 2 KCAL HP [Concomitant]
     Indication: Product used for unknown indication
     Dosage: 500 ML, Q24H
     Route: 065
     Dates: start: 20220809
  16. FRESUBIN 2 KCAL HP [Concomitant]
     Dosage: 250 ML (MORNING WITH A FLOW RATE OF 80 ML PER HOUR)
     Route: 065
  17. AMLODIPINE BESYLATE [Concomitant]
     Active Substance: AMLODIPINE BESYLATE
     Indication: Product used for unknown indication
     Dosage: 1 DOSAGE FORM, QD
     Route: 065
     Dates: start: 20220809
  18. FUROSEMIDE [Concomitant]
     Active Substance: FUROSEMIDE
     Indication: Product used for unknown indication
     Dosage: 1 DOSAGE FORM, QD
     Route: 065
     Dates: start: 20220809
  19. FUROSEMIDE [Concomitant]
     Active Substance: FUROSEMIDE
     Dosage: 20 MG, QD
     Route: 065
     Dates: start: 20220901
  20. POTASSIUM GLUCONATE [Concomitant]
     Active Substance: POTASSIUM GLUCONATE
     Indication: Product used for unknown indication
     Dosage: 15 ML
     Route: 065
     Dates: start: 20220809
  21. SMECTA [Concomitant]
     Active Substance: MONTMORILLONITE
     Indication: Product used for unknown indication
     Dosage: 3 G, TID
     Route: 065
     Dates: start: 20220809
  22. TAHOR [Concomitant]
     Active Substance: ATORVASTATIN CALCIUM
     Indication: Product used for unknown indication
     Dosage: 10 MG, QD
     Route: 065
     Dates: start: 20220809
  23. GLICLAZIDE [Concomitant]
     Active Substance: GLICLAZIDE
     Indication: Product used for unknown indication
     Dosage: 60 MG, QD
     Route: 065
     Dates: start: 20220809
  24. GLICLAZIDE [Concomitant]
     Active Substance: GLICLAZIDE
     Dosage: 60 MG, QD
     Route: 065
     Dates: start: 20220901
  25. ALFUZOSIN [Concomitant]
     Active Substance: ALFUZOSIN
     Indication: Product used for unknown indication
     Dosage: 10 MG, QD (LP)
     Route: 065
     Dates: start: 20220809
  26. CANDESARTAN [Concomitant]
     Active Substance: CANDESARTAN
     Indication: Product used for unknown indication
     Dosage: 8 MG, QD
     Route: 065
     Dates: start: 20220901
  27. AMLODIPINE BESYLATE [Concomitant]
     Active Substance: AMLODIPINE BESYLATE
     Indication: Product used for unknown indication
     Dosage: 5 MG, QD
     Route: 065
     Dates: start: 20220901
  28. POTASSIUM CHLORIDE [Concomitant]
     Active Substance: POTASSIUM CHLORIDE
     Indication: Product used for unknown indication
     Dosage: 600 MG, TID (2 - 2 - 2)
     Route: 065
     Dates: start: 20220901
  29. METFORMIN PAMOATE [Concomitant]
     Active Substance: METFORMIN PAMOATE
     Indication: Product used for unknown indication
     Dosage: 700 MG, BID
     Route: 065
     Dates: start: 20220901
  30. ALFUZOSIN HYDROCHLORIDE [Concomitant]
     Active Substance: ALFUZOSIN HYDROCHLORIDE
     Indication: Product used for unknown indication
     Dosage: 10 MG, QD
     Route: 065
     Dates: start: 20220901
  31. LOVENOX [Concomitant]
     Active Substance: ENOXAPARIN SODIUM
     Indication: Product used for unknown indication
     Dosage: 1 INJECTION IN THE EVENING (STRENGTH: 4000)
     Route: 065
     Dates: start: 20220901
  32. XARELTO [Concomitant]
     Active Substance: RIVAROXABAN
     Indication: Product used for unknown indication
     Dosage: UNK (AFTER THE ATRIAL FLUTTER ABLATION)
     Route: 065
     Dates: end: 20230512
  33. PLAVIX [Concomitant]
     Active Substance: CLOPIDOGREL BISULFATE
     Indication: Product used for unknown indication
     Dosage: UNK (AFTER THE ATRIAL FLUTTER ABLATION)
     Route: 065
     Dates: end: 20230512
  34. RIVAROXABAN [Concomitant]
     Active Substance: RIVAROXABAN
     Indication: Product used for unknown indication
     Dosage: UNK (PLASMATIC DOSAGE WAS WITHIN THE NORMAL RANGE: LESS THAN 25 (NORMAL VALUE: LESS THAN 30))
     Route: 065
     Dates: start: 20220526

REACTIONS (27)
  - Arrhythmia [Unknown]
  - Subdural haematoma [Unknown]
  - Musculoskeletal stiffness [Unknown]
  - Epilepsy [Unknown]
  - Epistaxis [Unknown]
  - Glaucoma [Unknown]
  - Haematoma [Unknown]
  - Blood urea decreased [Unknown]
  - Blood creatinine decreased [Unknown]
  - Lung hyperinflation [Unknown]
  - Intraventricular haemorrhage [Unknown]
  - Meningitis [Unknown]
  - Obstruction [Unknown]
  - Agitation [Unknown]
  - Pneumonia [Unknown]
  - Pneumonitis [Unknown]
  - Pseudomonas infection [Unknown]
  - Hemiplegia [Unknown]
  - Cerebrovascular accident [Unknown]
  - Diarrhoea [Unknown]
  - Dysphagia [Unknown]
  - Hydrocephalus [Unknown]
  - Drug hypersensitivity [Unknown]
  - Urinary tract infection [Unknown]
  - Varicose vein [Unknown]
  - Device occlusion [Unknown]
  - Vomiting [Unknown]

NARRATIVE: CASE EVENT DATE: 20211201
